FAERS Safety Report 5602105-6 (Version None)
Quarter: 2008Q1

REPORT INFORMATION
  Report Type: 
  Country: None (occurrence: None)
  Receive Date: 20080125
  Receipt Date: 20080121
  Transmission Date: 20080703
  Serious: Yes (Life-Threatening, Hospitalization, Disabling)
  Sender: FDA-Public Use
  Company Number: PHEH2007US15769

PATIENT
  Age: 69 Year
  Sex: Female
  Weight: 65.306 kg

DRUGS (22)
  1. RECLAST [Suspect]
     Indication: OSTEOPOROSIS
     Dosage: UNK, ONCE/SINGLE
     Route: 042
     Dates: start: 20071108, end: 20071108
  2. XOPENEX [Concomitant]
  3. LITHIUM CARBONATE [Concomitant]
     Dosage: 300 MG, BID
  4. ADVAIR DISKUS 100/50 [Concomitant]
  5. PRIMIDONE [Concomitant]
     Dosage: 50 MG, BID
  6. LEXAPRO [Concomitant]
  7. NEXIUM [Concomitant]
     Dosage: 40 MG, QD
  8. PREDNISONE TAB [Concomitant]
     Dosage: 5 MG, 4-2 ALTERNATING MORNINGS
  9. MIRAPEX [Concomitant]
     Dosage: 1 MG, TID
  10. VITAMIN D [Concomitant]
  11. SPIRIVA [Concomitant]
  12. CALCIUM WITH VITAMIN D [Concomitant]
     Dosage: UNK, BID
  13. AMBIEN [Concomitant]
     Dosage: 10 MG, QHS
  14. KLONOPIN [Concomitant]
  15. ARICEPT [Concomitant]
     Dosage: 10 MG, QD
  16. SEROQUEL [Concomitant]
     Dates: start: 20071109
  17. NITROGLYCERIN [Concomitant]
     Dosage: 0.4 PRN
  18. MACROBID [Concomitant]
     Dosage: 100 MG, QHS
  19. XANAX [Concomitant]
  20. LYRICA [Concomitant]
     Dosage: 50 MG, UNK
  21. ZANAFLEX [Concomitant]
     Dates: end: 20071114
  22. LONOX [Concomitant]
     Dosage: UNK, PRN

REACTIONS (6)
  - CHILLS [None]
  - CONCOMITANT DISEASE AGGRAVATED [None]
  - DYSPNOEA [None]
  - EMPHYSEMA [None]
  - MYALGIA [None]
  - PYREXIA [None]
